FAERS Safety Report 24978464 (Version 1)
Quarter: 2025Q1

REPORT INFORMATION
  Report Type: Spontaneous
  Country: US (occurrence: US)
  Receive Date: 20250217
  Receipt Date: 20250217
  Transmission Date: 20250409
  Serious: No
  Sender: Haleon PLC
  Company Number: US-HALEON-2227947

PATIENT

DRUGS (3)
  1. THERAFLU SEVERE COLD RELIEF DAYTIME BERRY BURST (ACETAMINOPHEN\DEXTROM [Suspect]
     Active Substance: ACETAMINOPHEN\DEXTROMETHORPHAN HYDROBROMIDE
     Indication: Multiple allergies
  2. ACETAMINOPHEN\DIPHENHYDRAMINE [Suspect]
     Active Substance: ACETAMINOPHEN\DIPHENHYDRAMINE
     Indication: Multiple allergies
  3. ACETAMINOPHEN\DEXTROMETHORPHAN HYDROBROMIDE\GUAIFENESIN\PHENYLEPHRINE [Suspect]
     Active Substance: ACETAMINOPHEN\DEXTROMETHORPHAN HYDROBROMIDE\GUAIFENESIN\PHENYLEPHRINE HYDROCHLORIDE
     Indication: Multiple allergies

REACTIONS (3)
  - Oropharyngeal pain [Unknown]
  - Product use in unapproved indication [Unknown]
  - Dyspepsia [Unknown]
